FAERS Safety Report 9260095 (Version 1)
Quarter: 2013Q2

REPORT INFORMATION
  Report Type: Report from Study
  Country: US (occurrence: US)
  Receive Date: 20130429
  Receipt Date: 20130429
  Transmission Date: 20140414
  Serious: Yes (Other)
  Sender: FDA-Public Use
  Company Number: US-JNJFOC-20130412190

PATIENT
  Sex: Female
  Weight: 63.5 kg

DRUGS (7)
  1. REMICADE [Suspect]
     Indication: ARTHRITIS
     Route: 042
     Dates: end: 201304
  2. REMICADE [Suspect]
     Indication: ARTHRITIS
     Route: 042
     Dates: start: 201204
  3. SIMVASTATIN [Concomitant]
     Indication: BLOOD CHOLESTEROL INCREASED
     Route: 065
     Dates: start: 2011
  4. VICODIN [Concomitant]
     Indication: PAIN
     Route: 065
  5. FLEXERIL [Concomitant]
     Indication: PAIN
     Route: 065
  6. PRILOSEC [Concomitant]
     Indication: GASTRIC DISORDER
     Route: 065
  7. VITAMINS NOS [Concomitant]
     Route: 065

REACTIONS (3)
  - Transient ischaemic attack [Recovered/Resolved]
  - Arthritis [Unknown]
  - Drug ineffective [Not Recovered/Not Resolved]
